FAERS Safety Report 4550420-X (Version None)
Quarter: 2005Q1

REPORT INFORMATION
  Report Type: 
  Country: None (occurrence: None)
  Receive Date: 20050112
  Receipt Date: 20041124
  Transmission Date: 20050727
  Serious: Yes (Other)
  Sender: FDA-Public Use
  Company Number: US-GLAXOSMITHKLINE-A0535604A

PATIENT
  Sex: Female
  Weight: 100 kg

DRUGS (2)
  1. LAMICTAL [Suspect]
     Indication: BIPOLAR DISORDER
     Route: 048
  2. EFFEXOR XR [Suspect]
     Route: 048

REACTIONS (3)
  - DRUG INTERACTION [None]
  - HALLUCINATION, AUDITORY [None]
  - HALLUCINATION, TACTILE [None]
